FAERS Safety Report 4441313-7 (Version None)
Quarter: 2004Q3

REPORT INFORMATION
  Report Type: 
  Country: None (occurrence: None)
  Receive Date: 20040728
  Receipt Date: 20040419
  Transmission Date: 20050211
  Serious: No
  Sender: FDA-Public Use
  Company Number: USA040465270

PATIENT
  Age: 14 Year
  Sex: Female
  Weight: 37 kg

DRUGS (1)
  1. STRATTERA [Suspect]
     Dosage: 25 MG DAY
     Dates: start: 20040417

REACTIONS (2)
  - ABNORMAL BEHAVIOUR [None]
  - AGITATION [None]
